FAERS Safety Report 10562480 (Version 1)
Quarter: 2014Q4

REPORT INFORMATION
  Report Type: Spontaneous
  Country: US (occurrence: None)
  Receive Date: 20141103
  Receipt Date: 20141103
  Transmission Date: 20150529
  Serious: Yes (Hospitalization)
  Sender: FDA-Public Use
  Company Number: None

PATIENT
  Age: 80 Year
  Sex: Male
  Weight: 79.5 kg

DRUGS (2)
  1. NAPROXEN. [Suspect]
     Active Substance: NAPROXEN
     Indication: SURGERY
     Route: 048
     Dates: start: 20120205
  2. NAPROXEN. [Suspect]
     Active Substance: NAPROXEN
     Indication: KNEE OPERATION
     Route: 048
     Dates: start: 20120205

REACTIONS (1)
  - Angioedema [None]

NARRATIVE: CASE EVENT DATE: 20120205
